FAERS Safety Report 8326714-9 (Version None)
Quarter: 2012Q2

REPORT INFORMATION
  Report Type: 
  Country: None (occurrence: None)
  Receive Date: 20120501
  Receipt Date: 20110813
  Transmission Date: 20120825
  Serious: No
  Sender: FDA-Public Use
  Company Number: US-SANOFI-AVENTIS-2011SA052830

PATIENT
  Age: 31 Year
  Sex: Female

DRUGS (2)
  1. APIDRA [Suspect]
     Route: 058
     Dates: start: 20100901
  2. SOLOSTAR [Suspect]
     Dates: start: 20100901

REACTIONS (3)
  - ARTHRALGIA [None]
  - GLYCOSYLATED HAEMOGLOBIN INCREASED [None]
  - MUSCULOSKELETAL STIFFNESS [None]
